FAERS Safety Report 16936339 (Version 2)
Quarter: 2019Q4

REPORT INFORMATION
  Report Type: Spontaneous
  Country: US (occurrence: US)
  Receive Date: 20191018
  Receipt Date: 20191222
  Transmission Date: 20200122
  Serious: Yes (Other)
  Sender: FDA-Public Use
  Company Number: US-BIOGEN-2019BI00796155

PATIENT
  Sex: Female

DRUGS (8)
  1. AVONEX [Suspect]
     Active Substance: INTERFERON BETA-1A
  2. AVONEX PEN [Suspect]
     Active Substance: INTERFERON BETA-1A
     Indication: MULTIPLE SCLEROSIS
     Route: 065
  3. AVONEX [Suspect]
     Active Substance: INTERFERON BETA-1A
     Route: 065
     Dates: start: 20191007
  4. AVONEX PEN [Suspect]
     Active Substance: INTERFERON BETA-1A
     Route: 065
     Dates: start: 20191007
  5. AVONEX PEN [Suspect]
     Active Substance: INTERFERON BETA-1A
  6. AVONEX [Suspect]
     Active Substance: INTERFERON BETA-1A
  7. AVONEX [Suspect]
     Active Substance: INTERFERON BETA-1A
     Indication: MULTIPLE SCLEROSIS
     Route: 065
  8. AVONEX PEN [Suspect]
     Active Substance: INTERFERON BETA-1A

REACTIONS (1)
  - Blindness transient [Unknown]
